FAERS Safety Report 7914510-3 (Version None)
Quarter: 2011Q4

REPORT INFORMATION
  Report Type: 
  Country: None (occurrence: None)
  Receive Date: 20111115
  Receipt Date: 20111031
  Transmission Date: 20120403
  Serious: Yes (Other)
  Sender: FDA-Public Use
  Company Number: PHEH2011US08177

PATIENT
  Sex: Female

DRUGS (9)
  1. CLONIDINE [Suspect]
  2. GAS X [Suspect]
     Dosage: UNK
  3. PLAVIX [Concomitant]
     Dosage: UNK UKN, UNK
  4. MIRALAX [Concomitant]
     Dosage: UNK
  5. STOOL SOFTENER [Concomitant]
     Dosage: UNK UKN, UNK
  6. DIOVAN [Suspect]
     Dosage: 80 MG, QD
  7. METOPROLOL TARTRATE [Suspect]
     Dosage: UNK
  8. LISINOPRIL [Suspect]
     Dosage: UNK
  9. AUGMENTIN [Concomitant]
     Dosage: UNK UKN, UNK

REACTIONS (5)
  - BLOOD PRESSURE DIASTOLIC INCREASED [None]
  - CONSTIPATION [None]
  - ABDOMINAL PAIN UPPER [None]
  - HEAD INJURY [None]
  - TREMOR [None]
